FAERS Safety Report 17001376 (Version 5)
Quarter: 2020Q1

REPORT INFORMATION
  Report Type: Spontaneous
  Country: US (occurrence: US)
  Receive Date: 20191106
  Receipt Date: 20200205
  Transmission Date: 20200409
  Serious: Yes (Hospitalization, Other)
  Sender: FDA-Public Use
  Company Number: US-PFIZER INC-2019473968

PATIENT
  Age: 71 Year
  Sex: Female
  Weight: 54.43 kg

DRUGS (6)
  1. LEVETIRACETAM. [Suspect]
     Active Substance: LEVETIRACETAM
     Dosage: 750 MG (ALTERNATING LIKE EVERY 8 HOURS, THERE WAS OFTEN EVERY 6 HOURS)
     Route: 042
     Dates: end: 20191024
  2. LEVETIRACETAM. [Suspect]
     Active Substance: LEVETIRACETAM
     Dosage: 500 MG, 3X/DAY (IV Q8H)
     Route: 042
     Dates: start: 20191023, end: 20191028
  3. LEVETIRACETAM. [Suspect]
     Active Substance: LEVETIRACETAM
     Dosage: 750 MG, UNK
     Route: 042
     Dates: start: 20191023, end: 20191028
  4. PROZAC [Concomitant]
     Active Substance: FLUOXETINE HYDROCHLORIDE
     Indication: DEPRESSION
     Dosage: 10 MG, DAILY
     Dates: start: 201908
  5. ASPIRIN [ACETYLSALICYLIC ACID] [Concomitant]
     Active Substance: ASPIRIN
     Indication: ANTICOAGULANT THERAPY
     Dosage: 81 MG, DAILY
     Dates: start: 201910
  6. LEVETIRACETAM. [Suspect]
     Active Substance: LEVETIRACETAM
     Indication: SEIZURE
     Dosage: 500 MG, 4X/DAY; (Q6H)
     Route: 042
     Dates: start: 20191023, end: 20191028

REACTIONS (4)
  - Respiratory disorder [Unknown]
  - Drug ineffective [Unknown]
  - Seizure [Recovered/Resolved]
  - Off label use [Unknown]

NARRATIVE: CASE EVENT DATE: 2019
